FAERS Safety Report 19268939 (Version 1)
Quarter: 2021Q2

REPORT INFORMATION
  Report Type: Spontaneous
  Country: FR (occurrence: FR)
  Receive Date: 20210517
  Receipt Date: 20210517
  Transmission Date: 20210717
  Serious: Yes (Hospitalization)
  Sender: FDA-Public Use
  Company Number: FR-PFIZER INC-2021496916

PATIENT
  Age: 61 Year
  Sex: Female
  Weight: 49 kg

DRUGS (1)
  1. CARBOPLATINE HOSPIRA [Suspect]
     Active Substance: CARBOPLATIN
     Indication: OVARIAN CANCER
     Route: 040
     Dates: start: 20210402

REACTIONS (3)
  - Dyspnoea [Unknown]
  - Malaise [Unknown]
  - Pruritus [Unknown]

NARRATIVE: CASE EVENT DATE: 20210402
